FAERS Safety Report 6141856-4 (Version None)
Quarter: 2009Q2

REPORT INFORMATION
  Report Type: 
  Country: None (occurrence: None)
  Receive Date: 20090401
  Receipt Date: 20090401
  Transmission Date: 20091009
  Serious: No
  Sender: FDA-Public Use
  Company Number: None

PATIENT
  Sex: Male
  Weight: 99.7913 kg

DRUGS (1)
  1. CIPROFLOXACIN HCL [Suspect]
     Indication: URINARY TRACT INFECTION
     Dosage: 500 MG 1X EVERY 12 HRS PO
     Route: 048
     Dates: start: 20090327

REACTIONS (5)
  - ABDOMINAL PAIN [None]
  - DIZZINESS [None]
  - MALAISE [None]
  - PALPITATIONS [None]
  - PHOTOPHOBIA [None]
